FAERS Safety Report 5632073-2 (Version None)
Quarter: 2008Q1

REPORT INFORMATION
  Report Type: 
  Country: None (occurrence: None)
  Receive Date: 20080220
  Receipt Date: 20080214
  Transmission Date: 20080703
  Serious: Yes (Hospitalization)
  Sender: FDA-Public Use
  Company Number: A0710562A

PATIENT
  Age: 36 Year
  Sex: Female

DRUGS (5)
  1. PAXIL CR [Suspect]
     Indication: DEPRESSION
     Dosage: 37.5MG PER DAY
     Dates: start: 20070718, end: 20070918
  2. CYMBALTA [Suspect]
     Indication: DRUG USE FOR UNKNOWN INDICATION
  3. ELAVIL [Concomitant]
  4. BENADRYL [Concomitant]
  5. RHINOCORT [Concomitant]

REACTIONS (2)
  - ADVERSE EVENT [None]
  - SUICIDAL IDEATION [None]
